FAERS Safety Report 10061557 (Version 1)
Quarter: 2014Q2

REPORT INFORMATION
  Report Type: Spontaneous
  Country: US (occurrence: None)
  Receive Date: 20140404
  Receipt Date: 20140404
  Transmission Date: 20141212
  Serious: Yes (Other)
  Sender: FDA-Public Use
  Company Number: None

PATIENT
  Age: 37 Year
  Sex: Male
  Weight: 74.39 kg

DRUGS (7)
  1. TEMAZEPAM [Suspect]
     Indication: DRUG THERAPY
     Dates: end: 20100916
  2. RISPERIDONE [Concomitant]
  3. CITALOPRAM [Concomitant]
  4. ALPRAZOLAM [Concomitant]
  5. DIVALPROEX [Concomitant]
  6. BENZTROPINE [Concomitant]
  7. SEROQUEL [Concomitant]

REACTIONS (4)
  - Insomnia [None]
  - Confusional state [None]
  - Screaming [None]
  - Nightmare [None]
